FAERS Safety Report 10418202 (Version 3)
Quarter: 2014Q4

REPORT INFORMATION
  Report Type: Spontaneous
  Country: US (occurrence: None)
  Receive Date: 20140827
  Receipt Date: 20141118
  Transmission Date: 20150528
  Serious: Yes (Other)
  Sender: FDA-Public Use
  Company Number: 2014-20212

PATIENT
  Age: 76 Year
  Sex: Female
  Weight: 152 kg

DRUGS (9)
  1. TRAMADOL (TRAMADOL) [Concomitant]
     Active Substance: TRAMADOL
  2. LISINOPRIL (LISNOPRIL) [Concomitant]
  3. CARVEDILOL (CARVEDILOL) [Concomitant]
     Active Substance: CARVEDILOL
  4. ATIVAN [Concomitant]
     Active Substance: LORAZEPAM
  5. MELOXICAM (MELOXICAM) [Concomitant]
     Active Substance: MELOXICAM
  6. LEVOTHROID (LEVOTHYROXINE SODIUM) [Concomitant]
  7. PLAVIX [Concomitant]
     Active Substance: CLOPIDOGREL BISULFATE
  8. EYLEA [Suspect]
     Active Substance: AFLIBERCEPT
     Indication: AGE-RELATED MACULAR DEGENERATION
     Dosage: 2 MILLIGRAMS/0.05 ML MILLILITRE(S), EVERY 4 TO 6 WEEKS, INTRAOCULAR
     Route: 031
     Dates: start: 20140404
  9. NITRO /00003201/ (GLYCERYL TRINITRATE) [Concomitant]

REACTIONS (1)
  - Basal cell carcinoma [None]
